FAERS Safety Report 7569650-8 (Version None)
Quarter: 2011Q2

REPORT INFORMATION
  Report Type: 
  Country: None (occurrence: None)
  Receive Date: 20110624
  Receipt Date: 20110616
  Transmission Date: 20111010
  Serious: No
  Sender: FDA-Public Use
  Company Number: US-PFIZER INC-2011132471

PATIENT
  Sex: Female
  Weight: 74.83 kg

DRUGS (4)
  1. SIMVASTATIN [Suspect]
     Indication: BLOOD CHOLESTEROL INCREASED
     Dosage: 20 MG, DAILY
     Route: 048
  2. LOSARTAN [Concomitant]
     Indication: HYPERTENSION
     Dosage: 50 MG, DAILY
     Route: 048
  3. DETROL LA [Suspect]
     Indication: MICTURITION URGENCY
     Dosage: 4 MG, DAILY
     Route: 048
  4. ACIPHEX [Concomitant]
     Indication: GASTROOESOPHAGEAL REFLUX DISEASE
     Dosage: 20 MG, DAILY
     Route: 048

REACTIONS (3)
  - POOR QUALITY SLEEP [None]
  - POLLAKIURIA [None]
  - DRY MOUTH [None]
